FAERS Safety Report 4822223-X (Version None)
Quarter: 2005Q4

REPORT INFORMATION
  Report Type: 
  Country: None (occurrence: None)
  Receive Date: 20051103
  Receipt Date: 20051019
  Transmission Date: 20060501
  Serious: Yes (Hospitalization, Other)
  Sender: FDA-Public Use
  Company Number: USA0510111417

PATIENT
  Age: 28 Year
  Sex: Male

DRUGS (7)
  1. ZYPREXA [Suspect]
     Indication: BIPOLAR DISORDER
     Dosage: 10 MG
     Dates: start: 20040201, end: 20050301
  2. METFORMIN [Concomitant]
  3. HALDOL [Concomitant]
  4. NEURONTIN [Concomitant]
  5. LITHIUM [Concomitant]
  6. GEODON [Concomitant]
  7. LAMICTAL [Concomitant]

REACTIONS (5)
  - AGGRESSION [None]
  - CONCUSSION [None]
  - DIABETES MELLITUS INADEQUATE CONTROL [None]
  - HEAD INJURY [None]
  - LOSS OF CONSCIOUSNESS [None]
